FAERS Safety Report 4368052-5 (Version None)
Quarter: 2004Q2

REPORT INFORMATION
  Report Type: 
  Country: None (occurrence: None)
  Receive Date: 20040527
  Receipt Date: 20040213
  Transmission Date: 20050107
  Serious: No
  Sender: FDA-Public Use
  Company Number: 204084

PATIENT
  Age: 63 Year
  Sex: Female
  Weight: 63.5 kg

DRUGS (3)
  1. RAPTIVA [Suspect]
     Indication: PSORIASIS
     Dosage: 0.7 MG/KG, SINGLE, SUBCUTANEOUS; 0.6 MG/KG, 1/WEEK, SUBCUTANEOUS
     Route: 058
     Dates: start: 20031215, end: 20031215
  2. RAPTIVA [Suspect]
     Indication: PSORIASIS
     Dosage: 0.7 MG/KG, SINGLE, SUBCUTANEOUS; 0.6 MG/KG, 1/WEEK, SUBCUTANEOUS
     Route: 058
     Dates: start: 20031222
  3. CYCLOSPORINE [Concomitant]

REACTIONS (1)
  - RASH [None]
